FAERS Safety Report 8356405-X (Version None)
Quarter: 2012Q2

REPORT INFORMATION
  Report Type: 
  Country: None (occurrence: None)
  Receive Date: 20120514
  Receipt Date: 20120510
  Transmission Date: 20120825
  Serious: No
  Sender: FDA-Public Use
  Company Number: US-PFIZER INC-2012114491

PATIENT
  Sex: Male

DRUGS (1)
  1. CHANTIX [Suspect]
     Dosage: UNK
     Route: 048
     Dates: start: 20120501

REACTIONS (4)
  - FEELING JITTERY [None]
  - MUSCLE TIGHTNESS [None]
  - RESTLESSNESS [None]
  - RESTLESS LEGS SYNDROME [None]
